FAERS Safety Report 4375961-X (Version None)
Quarter: 2004Q2

REPORT INFORMATION
  Report Type: 
  Country: None (occurrence: None)
  Receive Date: 20040609
  Receipt Date: 20040609
  Transmission Date: 20050107
  Serious: Yes (Hospitalization)
  Sender: FDA-Public Use
  Company Number: None

PATIENT
  Age: 29 Year
  Sex: Male

DRUGS (8)
  1. COUMADIN [Suspect]
     Indication: ANTICOAGULANT THERAPY
     Dosage: 6 MG SUN, TU, TR, ORAL
     Route: 048
  2. ASPIRIN [Suspect]
     Indication: ANTICOAGULANT THERAPY
     Dosage: 325 MG DAILY ORAL
     Route: 048
  3. FOLIC ACID [Concomitant]
  4. LOSARTAN POTASSIUM [Concomitant]
  5. METOPROLOL TARTRATE [Concomitant]
  6. RABEPRAZOLE SODIUM [Concomitant]
  7. SIMVASTATIN [Concomitant]
  8. COUMADIN [Concomitant]

REACTIONS (10)
  - DIVERTICULUM [None]
  - DYSPNOEA [None]
  - DYSPNOEA EXERTIONAL [None]
  - FAECAL OCCULT BLOOD POSITIVE [None]
  - GASTRITIS [None]
  - HAEMATOCRIT DECREASED [None]
  - HAEMOGLOBIN DECREASED [None]
  - HAEMORRHOIDS [None]
  - INTERNATIONAL NORMALISED RATIO INCREASED [None]
  - PALPITATIONS [None]
